FAERS Safety Report 10819568 (Version 1)
Quarter: 2015Q1

REPORT INFORMATION
  Report Type: Report from Study
  Country: US (occurrence: US)
  Receive Date: 20150218
  Receipt Date: 20150218
  Transmission Date: 20150721
  Serious: No
  Sender: FDA-Public Use
  Company Number: US-ABBVIE-14K-163-1292387-00

PATIENT
  Age: 37 Year
  Sex: Male

DRUGS (1)
  1. HUMIRA [Suspect]
     Active Substance: ADALIMUMAB
     Indication: PSORIASIS
     Route: 065
     Dates: start: 20140529, end: 201407

REACTIONS (8)
  - Psoriasis [Not Recovered/Not Resolved]
  - Abdominal pain lower [Unknown]
  - Groin pain [Unknown]
  - Oropharyngeal pain [Recovered/Resolved]
  - Guttate psoriasis [Not Recovered/Not Resolved]
  - Rash papular [Unknown]
  - Inguinal hernia [Unknown]
  - Pharyngitis streptococcal [Recovered/Resolved]

NARRATIVE: CASE EVENT DATE: 201409
